FAERS Safety Report 6128781-X (Version None)
Quarter: 2009Q1

REPORT INFORMATION
  Report Type: 
  Country: None (occurrence: None)
  Receive Date: 20090320
  Receipt Date: 20090309
  Transmission Date: 20090719
  Serious: Yes (Life-Threatening, Hospitalization)
  Sender: FDA-Public Use
  Company Number: GRP09000027

PATIENT
  Age: 69 Year
  Sex: Female
  Weight: 49 kg

DRUGS (6)
  1. DIDRONEL [Suspect]
     Indication: OSTEOPOROSIS
     Dosage: 200 MG, 1 /DAY ORAL
     Route: 048
     Dates: start: 20041201, end: 20080601
  2. ACETYLSALICYLIC ACID SRT [Suspect]
     Indication: HEPATIC CIRRHOSIS
     Dosage: 100 MG 1/DAY ORAL
     Route: 048
     Dates: start: 20060101, end: 20080601
  3. ALLOPURINOL [Concomitant]
  4. CALCIUM (CALCIUM) [Concomitant]
  5. SPIRONOLACTONE [Concomitant]
  6. XIPAMIDE (XIPAMIDE) [Concomitant]

REACTIONS (15)
  - ABDOMINAL DISTENSION [None]
  - ACTIVATED PARTIAL THROMBOPLASTIN TIME PROLONGED [None]
  - GASTROINTESTINAL ULCER HAEMORRHAGE [None]
  - HAEMATEMESIS [None]
  - HAEMATOCRIT DECREASED [None]
  - HAEMOGLOBIN DECREASED [None]
  - HEART RATE INCREASED [None]
  - HIATUS HERNIA [None]
  - MELAENA [None]
  - NAUSEA [None]
  - OSTEOPOROSIS [None]
  - PLATELET COUNT DECREASED [None]
  - PROTHROMBIN TIME PROLONGED [None]
  - REFLUX OESOPHAGITIS [None]
  - REGURGITATION [None]
